FAERS Safety Report 6524242-4 (Version None)
Quarter: 2009Q4

REPORT INFORMATION
  Report Type: 
  Country: None (occurrence: None)
  Receive Date: 20091230
  Receipt Date: 20091230
  Transmission Date: 20100525
  Serious: Yes (Hospitalization)
  Sender: FDA-Public Use
  Company Number: None

PATIENT
  Age: 60 Year
  Sex: Male

DRUGS (1)
  1. PIPERACILLIN AND TAZOBACTAM [Suspect]
     Indication: UPPER RESPIRATORY TRACT INFECTION
     Dosage: 3.375 GM QID IV
     Route: 042
     Dates: start: 20091209, end: 20091210

REACTIONS (1)
  - RASH [None]
